FAERS Safety Report 18961702 (Version 2)
Quarter: 2021Q1

REPORT INFORMATION
  Report Type: Spontaneous
  Country: CN (occurrence: CN)
  Receive Date: 20210302
  Receipt Date: 20210315
  Transmission Date: 20210420
  Serious: Yes (Other)
  Sender: FDA-Public Use
  Company Number: CN-BEH-2021128933

PATIENT
  Sex: Male
  Weight: 60 kg

DRUGS (1)
  1. ALBURX [Suspect]
     Active Substance: ALBUMIN HUMAN
     Indication: PROTEIN DEFICIENCY
     Dosage: 1 BOTTLE, TOT
     Route: 065
     Dates: start: 20210223, end: 20210223

REACTIONS (3)
  - Swollen tongue [Unknown]
  - Eye swelling [Unknown]
  - Pyrexia [Unknown]

NARRATIVE: CASE EVENT DATE: 20210223
